FAERS Safety Report 24571139 (Version 1)
Quarter: 2024Q4

REPORT INFORMATION
  Report Type: Spontaneous
  Country: US (occurrence: US)
  Receive Date: 20241101
  Receipt Date: 20241101
  Transmission Date: 20250115
  Serious: No
  Sender: BAUSCH AND LOMB
  Company Number: US-BAUSCH-BL-2024-016072

PATIENT

DRUGS (1)
  1. NASALCROM [Suspect]
     Active Substance: CROMOLYN SODIUM
     Indication: Mast cell activation syndrome
     Route: 045

REACTIONS (2)
  - Anxiety [Unknown]
  - Sympathomimetic effect [Unknown]
